FAERS Safety Report 24020585 (Version 1)
Quarter: 2024Q2

REPORT INFORMATION
  Report Type: Spontaneous
  Country: US (occurrence: US)
  Receive Date: 20240627
  Receipt Date: 20240627
  Transmission Date: 20240716
  Serious: No
  Sender: FDA-Public Use
  Company Number: US-002147023-NVSC2024US134307

PATIENT

DRUGS (1)
  1. TASIGNA [Suspect]
     Active Substance: NILOTINIB
     Indication: Chronic myeloid leukaemia
     Dosage: UNK
     Route: 065

REACTIONS (6)
  - Nausea [Unknown]
  - Myalgia [Unknown]
  - Dysgeusia [Unknown]
  - Sinusitis [Unknown]
  - Fatigue [Unknown]
  - Dyspnoea [Unknown]
